FAERS Safety Report 5267925-9 (Version None)
Quarter: 2007Q1

REPORT INFORMATION
  Report Type: 
  Country: None (occurrence: None)
  Receive Date: 20061213
  Receipt Date: 20051219
  Transmission Date: 20070707
  Serious: No
  Sender: FDA-Public Use
  Company Number: 2005AC01999

PATIENT
  Age: 69 Year
  Sex: Female

DRUGS (1)
  1. TAMOXIFEN CITRATE [Suspect]
     Indication: BREAST CANCER
     Dates: start: 19940101, end: 19980101

REACTIONS (2)
  - METASTASES TO RETROPERITONEUM [None]
  - SARCOMA UTERUS [None]
